FAERS Safety Report 5067837-X (Version None)
Quarter: 2006Q3

REPORT INFORMATION
  Report Type: 
  Country: None (occurrence: None)
  Receive Date: 20060717
  Receipt Date: 20051020
  Transmission Date: 20061208
  Serious: Yes (Hospitalization)
  Sender: FDA-Public Use
  Company Number: 2005-10-1202

PATIENT
  Age: 57 Year
  Sex: Male

DRUGS (5)
  1. INTEGRILIN [Suspect]
     Dosage: SEE IMAGE
     Route: 042
     Dates: start: 20051019, end: 20051019
  2. INTEGRILIN [Suspect]
     Dosage: SEE IMAGE
     Route: 042
     Dates: start: 20051019, end: 20051020
  3. INTEGRILIN [Suspect]
     Dosage: SEE IMAGE
     Route: 042
     Dates: start: 20051019, end: 20051020
  4. ASPIRIN [Suspect]
  5. PLAVIX [Suspect]

REACTIONS (1)
  - UPPER GASTROINTESTINAL HAEMORRHAGE [None]
